FAERS Safety Report 6604145-7 (Version None)
Quarter: 2010Q1

REPORT INFORMATION
  Report Type: 
  Country: None (occurrence: None)
  Receive Date: 20100226
  Receipt Date: 20090609
  Transmission Date: 20100710
  Serious: No
  Sender: FDA-Public Use
  Company Number: A0789728A

PATIENT
  Age: 55 Year
  Sex: Male

DRUGS (6)
  1. LAMICTAL CD [Suspect]
     Dosage: 25MG TWICE PER DAY
     Route: 048
     Dates: start: 20090325
  2. TOPAMAX [Concomitant]
  3. PHENOBARBITAL TAB [Concomitant]
  4. PRAVASTATIN [Concomitant]
  5. ATIVAN [Concomitant]
  6. INSULIN [Concomitant]

REACTIONS (3)
  - DIZZINESS [None]
  - URINE OUTPUT INCREASED [None]
  - WEIGHT DECREASED [None]
